FAERS Safety Report 11578123 (Version 2)
Quarter: 2020Q3

REPORT INFORMATION
  Report Type: Report from Study
  Country: US (occurrence: US)
  Receive Date: 20150930
  Receipt Date: 20151020
  Transmission Date: 20201104
  Serious: Yes (Hospitalization)
  Sender: FDA-Public Use
  Company Number: US-JNJFOC-20140316895

PATIENT
  Age: 76 Year
  Sex: Male
  Weight: 99.8 kg

DRUGS (37)
  1. USTEKINUMAB [Suspect]
     Active Substance: USTEKINUMAB
     Indication: PSORIASIS
     Route: 058
     Dates: start: 20130308
  2. ATENOLOL. [Concomitant]
     Active Substance: ATENOLOL
     Indication: CORONARY ARTERY DISEASE
     Route: 048
     Dates: start: 19970601
  3. MULTIVITAMINS [Concomitant]
     Active Substance: VITAMINS
     Indication: ROUTINE HEALTH MAINTENANCE
     Route: 065
     Dates: start: 20060601
  4. DOXYCYCLINE. [Concomitant]
     Active Substance: DOXYCYCLINE
     Indication: CARBUNCLE
     Route: 065
     Dates: start: 20120902, end: 20120905
  5. DOXYCYCLINE. [Concomitant]
     Active Substance: DOXYCYCLINE
     Indication: ARTHROPOD BITE
     Route: 065
     Dates: start: 20130927
  6. MUPIROCIN. [Concomitant]
     Active Substance: MUPIROCIN
     Indication: CARBUNCLE
     Route: 065
     Dates: start: 20130828, end: 20130917
  7. Z?PACK [Concomitant]
     Active Substance: AZITHROMYCIN DIHYDRATE
     Indication: UPPER RESPIRATORY TRACT INFECTION
     Route: 065
     Dates: start: 20140131
  8. HYDROCORTISONE. [Concomitant]
     Active Substance: HYDROCORTISONE
     Indication: PSORIASIS
     Route: 065
     Dates: start: 20120807
  9. CLINDAMYCIN. [Concomitant]
     Active Substance: CLINDAMYCIN
     Indication: BASAL CELL CARCINOMA
     Route: 065
     Dates: start: 20120918, end: 20121022
  10. LIDOCAINE. [Concomitant]
     Active Substance: LIDOCAINE
     Indication: SQUAMOUS CELL CARCINOMA
     Route: 065
     Dates: start: 20131203
  11. LIDOCAINE. [Concomitant]
     Active Substance: LIDOCAINE
     Indication: SQUAMOUS CELL CARCINOMA
     Route: 065
     Dates: start: 20120918, end: 20131203
  12. EPINEPHRINE. [Concomitant]
     Active Substance: EPINEPHRINE
     Indication: BASAL CELL CARCINOMA
     Route: 065
     Dates: start: 20120918, end: 20121203
  13. FLOMAX [Concomitant]
     Active Substance: TAMSULOSIN HYDROCHLORIDE
     Indication: URINARY RETENTION
     Route: 065
  14. PLAVIX [Concomitant]
     Active Substance: CLOPIDOGREL BISULFATE
     Indication: CORONARY ARTERY DISEASE
     Route: 048
     Dates: start: 20060601
  15. DOXYCYCLINE. [Concomitant]
     Active Substance: DOXYCYCLINE
     Indication: CARBUNCLE
     Route: 065
     Dates: start: 20130828, end: 20130917
  16. DOXYCYCLINE. [Concomitant]
     Active Substance: DOXYCYCLINE
     Indication: ARTHROPOD BITE
     Route: 065
     Dates: start: 20120902, end: 20120905
  17. BACTRIM [Concomitant]
     Active Substance: SULFAMETHOXAZOLE\TRIMETHOPRIM
     Indication: POST PROCEDURAL INFECTION
     Route: 065
     Dates: start: 20121109, end: 20121111
  18. CLINDAMYCIN. [Concomitant]
     Active Substance: CLINDAMYCIN
     Indication: BASAL CELL CARCINOMA
     Route: 065
     Dates: start: 20121101
  19. CETAPHIL UNSPECIFIED [Concomitant]
     Indication: PSORIASIS
     Route: 065
     Dates: start: 20120807
  20. DOXYCYCLINE. [Concomitant]
     Active Substance: DOXYCYCLINE
     Indication: ARTHROPOD BITE
     Route: 065
     Dates: start: 20130828, end: 20130917
  21. ASPIRIN. [Concomitant]
     Active Substance: ASPIRIN
     Indication: CORONARY ARTERY DISEASE
     Route: 065
     Dates: start: 20060601
  22. DOXYCYCLINE. [Concomitant]
     Active Substance: DOXYCYCLINE
     Indication: CARBUNCLE
     Route: 065
     Dates: start: 20130927
  23. DOXYCYCLINE. [Concomitant]
     Active Substance: DOXYCYCLINE
     Indication: ARTHROPOD BITE
     Route: 065
     Dates: start: 20121022
  24. AMLACTIN [Concomitant]
     Active Substance: AMMONIUM LACTATE
     Indication: PSORIATIC ARTHROPATHY
     Route: 065
     Dates: start: 20120831
  25. MUPIROCIN. [Concomitant]
     Active Substance: MUPIROCIN
     Indication: CARBUNCLE
     Route: 065
     Dates: start: 20131115
  26. VITAMIN C [Concomitant]
     Active Substance: ASCORBIC ACID
     Indication: NASOPHARYNGITIS
     Route: 065
     Dates: start: 20131022, end: 20131105
  27. FLOMAX [Concomitant]
     Active Substance: TAMSULOSIN HYDROCHLORIDE
     Indication: URINARY RETENTION
     Route: 065
     Dates: start: 20140323, end: 20140323
  28. TRIAMCINOLONE [Concomitant]
     Active Substance: TRIAMCINOLONE
     Indication: PSORIASIS
     Route: 065
     Dates: start: 2012, end: 20120807
  29. LIQUID NITROGEN [Concomitant]
     Active Substance: NITROGEN
     Indication: ACTINIC KERATOSIS
     Route: 065
     Dates: start: 20130603
  30. TOBRAMYCIN AND DEXAMETHASONE [Concomitant]
     Active Substance: DEXAMETHASONE\TOBRAMYCIN
     Indication: DRY EYE
     Route: 065
     Dates: start: 20130723, end: 20130910
  31. Z?PACK [Concomitant]
     Active Substance: AZITHROMYCIN DIHYDRATE
     Indication: UPPER RESPIRATORY TRACT INFECTION
     Route: 065
     Dates: start: 20140127, end: 20140129
  32. USTEKINUMAB [Suspect]
     Active Substance: USTEKINUMAB
     Indication: PSORIASIS
     Route: 058
     Dates: start: 20140306
  33. OMEGA 3 FATTY ACID [Concomitant]
     Active Substance: OMEGA-3 FATTY ACIDS
     Indication: ROUTINE HEALTH MAINTENANCE
     Route: 065
     Dates: start: 20060601, end: 20121022
  34. DOXYCYCLINE. [Concomitant]
     Active Substance: DOXYCYCLINE
     Indication: CARBUNCLE
     Route: 065
     Dates: start: 20121022
  35. BACTRIM [Concomitant]
     Active Substance: SULFAMETHOXAZOLE\TRIMETHOPRIM
     Indication: POST PROCEDURAL INFECTION
     Route: 065
     Dates: start: 20121120
  36. TOBRAMYCIN AND DEXAMETHASONE [Concomitant]
     Active Substance: DEXAMETHASONE\TOBRAMYCIN
     Indication: DRY EYE
     Route: 065
     Dates: start: 20130917
  37. CLOBETASOL [Concomitant]
     Active Substance: CLOBETASOL
     Indication: PSORIASIS
     Route: 065
     Dates: start: 2012, end: 20120807

REACTIONS (2)
  - Gastrointestinal haemorrhage [Recovering/Resolving]
  - Cystitis [Recovered/Resolved]

NARRATIVE: CASE EVENT DATE: 20140323
